FAERS Safety Report 5691284-0 (Version None)
Quarter: 2008Q2

REPORT INFORMATION
  Report Type: 
  Country: None (occurrence: None)
  Receive Date: 20080402
  Receipt Date: 20080321
  Transmission Date: 20081010
  Serious: Yes (Hospitalization)
  Sender: FDA-Public Use
  Company Number: TR-JNJFOC-20080306129

PATIENT
  Age: 37 Year
  Sex: Male

DRUGS (2)
  1. TOPIRAMATE [Suspect]
     Indication: NEUROPATHY PERIPHERAL
     Route: 048
  2. DANTROLENE SODIUM [Concomitant]
     Route: 048

REACTIONS (5)
  - AGEUSIA [None]
  - ANHEDONIA [None]
  - MEMORY IMPAIRMENT [None]
  - PSYCHOTIC DISORDER [None]
  - SCHIZOPHRENIA [None]
